FAERS Safety Report 5688316-2 (Version None)
Quarter: 2008Q1

REPORT INFORMATION
  Report Type: 
  Country: None (occurrence: None)
  Receive Date: 20080328
  Receipt Date: 20080328
  Transmission Date: 20080703
  Serious: No
  Sender: FDA-Public Use
  Company Number: None

PATIENT
  Sex: Male
  Weight: 43.0917 kg

DRUGS (3)
  1. SINGULAIR [Suspect]
     Indication: ASTHMA
     Dosage: 1 PILL DAILY PO
     Route: 048
     Dates: start: 20000101, end: 20080327
  2. SINGULAIR [Suspect]
     Indication: FOOD ALLERGY
     Dosage: 1 PILL DAILY PO
     Route: 048
     Dates: start: 20000101, end: 20080327
  3. SINGULAIR [Suspect]
     Indication: HYPERSENSITIVITY
     Dosage: 1 PILL DAILY PO
     Route: 048
     Dates: start: 20000101, end: 20080327

REACTIONS (5)
  - ABNORMAL BEHAVIOUR [None]
  - IRRITABILITY [None]
  - MOOD ALTERED [None]
  - NEGATIVISM [None]
  - SOCIAL AVOIDANT BEHAVIOUR [None]
